FAERS Safety Report 4834191-5 (Version None)
Quarter: 2005Q4

REPORT INFORMATION
  Report Type: 
  Country: None (occurrence: None)
  Receive Date: 20051118
  Receipt Date: 20051118
  Transmission Date: 20060501
  Serious: Yes (Hospitalization)
  Sender: FDA-Public Use
  Company Number: None

PATIENT
  Age: 57 Year
  Sex: Male
  Weight: 76 kg

DRUGS (2)
  1. CETUXIMAB [Suspect]
     Indication: NON-SMALL CELL LUNG CANCER
     Dosage: 250 MG/M2, IV , WEEKLY
     Route: 042
     Dates: start: 20051109
  2. PEMETREXED [Suspect]
     Dosage: 500 MG/M2, IV , Q3W
     Route: 042
     Dates: start: 20051020

REACTIONS (5)
  - COMPUTERISED TOMOGRAM ABNORMAL [None]
  - COUGH [None]
  - EPISTAXIS [None]
  - SWELLING FACE [None]
  - VEIN DISORDER [None]
